FAERS Safety Report 7826756-3 (Version None)
Quarter: 2011Q4

REPORT INFORMATION
  Report Type: 
  Country: None (occurrence: None)
  Receive Date: 20111020
  Receipt Date: 20111007
  Transmission Date: 20120403
  Serious: Yes (Hospitalization)
  Sender: FDA-Public Use
  Company Number: JP-UCBSA-003576

PATIENT
  Age: 68 Year
  Sex: Female

DRUGS (22)
  1. METHOTREXATE [Concomitant]
     Dates: start: 20090417
  2. DICLOFENAC [Concomitant]
     Route: 054
     Dates: start: 20090301
  3. CERTOLIZUMAB PEGOL [Suspect]
     Route: 058
     Dates: start: 20100722
  4. CELECOXIB [Concomitant]
     Dates: start: 20090416
  5. BETAMETHASONE [Concomitant]
     Dates: start: 20100319
  6. PREDNISOLONE FARNESYLATE [Concomitant]
     Dosage: PROPER DOSE
     Dates: start: 20090416
  7. METHOTREXATE [Concomitant]
     Indication: RHEUMATOID ARTHRITIS
     Route: 048
     Dates: start: 20070406, end: 20090410
  8. REBAMIPIDE [Concomitant]
     Indication: GASTRIC ULCER
     Route: 048
     Dates: start: 20090301, end: 20090603
  9. REBAMIPIDE [Concomitant]
     Indication: PROPHYLAXIS AGAINST GASTROINTESTINAL ULCER
     Route: 048
     Dates: start: 20090301, end: 20090603
  10. TIQUIZIUM BROMIDE [Concomitant]
     Indication: PROPHYLAXIS AGAINST GASTROINTESTINAL ULCER
     Route: 048
     Dates: start: 20090301, end: 20090603
  11. VALPROATE SODIUM [Concomitant]
     Dates: start: 20100318
  12. MOSAPRIDE CITRATE HYDRATE [Concomitant]
     Indication: GASTRIC ULCER
     Dates: start: 20090301
  13. CERTOLIZUMAB PEGOL [Suspect]
     Indication: RHEUMATOID ARTHRITIS
     Route: 058
     Dates: start: 20091001, end: 20100527
  14. RABEPRAZOLE SODIUM [Concomitant]
     Indication: PROPHYLAXIS AGAINST GASTROINTESTINAL ULCER
     Route: 048
     Dates: start: 20090301
  15. SCOPOLAMINE BUTYLBROMIDE [Concomitant]
     Indication: GASTRIC ULCER
     Dates: start: 20090301
  16. CANDESARTAN CILEXETIL [Concomitant]
     Dates: start: 20081001
  17. ISONIAZID [Concomitant]
     Dates: start: 20090603, end: 20100318
  18. LOXOPROFEN SODIUM [Concomitant]
     Indication: RHEUMATOID ARTHRITIS
     Route: 048
     Dates: start: 20070101, end: 20090101
  19. CANDESARTAN CILEXETIL [Concomitant]
     Indication: BLOOD PRESSURE INCREASED
     Dates: start: 20081001
  20. RABEPRAZOLE SODIUM [Concomitant]
     Indication: GASTRIC ULCER
     Route: 048
     Dates: start: 20090301
  21. FOLIC ACID [Concomitant]
     Dates: start: 20090419
  22. KETOPROFEN [Concomitant]
     Dosage: ONE DOSAGE FORM
     Dates: start: 20090416

REACTIONS (2)
  - CONTUSION [None]
  - MENINGIOMA [None]
